FAERS Safety Report 9318452 (Version 1)
Quarter: 2013Q2

REPORT INFORMATION
  Report Type: Spontaneous
  Country: GB (occurrence: GB)
  Receive Date: 20130530
  Receipt Date: 20130530
  Transmission Date: 20140414
  Serious: Yes (Hospitalization)
  Sender: FDA-Public Use
  Company Number: GB-PFIZER INC-2002112313GB

PATIENT
  Age: 75 Year
  Sex: Male

DRUGS (4)
  1. ATENOLOL [Suspect]
     Dosage: 100 MG, QD
     Route: 048
     Dates: end: 200205
  2. ATENOLOL [Suspect]
     Dosage: 50 MG, QD
     Route: 048
     Dates: start: 200205
  3. ASPIRIN [Concomitant]
     Dosage: UNK
     Route: 048
  4. SIMVASTATIN [Concomitant]
     Route: 048

REACTIONS (2)
  - Bradycardia [Unknown]
  - Circulatory collapse [Unknown]
